FAERS Safety Report 8101542-8 (Version None)
Quarter: 2012Q1

REPORT INFORMATION
  Report Type: 
  Country: None (occurrence: None)
  Receive Date: 20120129
  Receipt Date: 20110918
  Transmission Date: 20120608
  Serious: No
  Sender: FDA-Public Use
  Company Number: US-ABBOTT-11P-163-0855762-00

PATIENT
  Age: 68 Year
  Sex: Female

DRUGS (11)
  1. UNKNOWN NOSE SPRAY [Concomitant]
     Indication: HYPERSENSITIVITY
  2. SINGULAIR [Concomitant]
     Indication: PRODUCT USED FOR UNKNOWN INDICATION
     Dosage: DAILY
  3. HUMIRA [Suspect]
  4. CYMBALTA [Concomitant]
     Indication: PAIN
  5. METHOTREXATE [Concomitant]
     Indication: RHEUMATOID ARTHRITIS
     Dosage: 3 PILLS, WEEKLY
  6. XANAX [Concomitant]
     Indication: ANXIETY
     Dosage: 3 DAILY, AS NEEDED
  7. VERAPAMIL [Concomitant]
     Indication: BLOOD PRESSURE
  8. FOLIC ACID [Concomitant]
     Indication: VITAMIN SUPPLEMENTATION
  9. PROVIGIL [Concomitant]
     Indication: NARCOLEPSY
  10. HUMIRA [Suspect]
     Indication: RHEUMATOID ARTHRITIS
  11. TRAMADOL HCL [Concomitant]
     Indication: PAIN

REACTIONS (1)
  - PAIN [None]
